FAERS Safety Report 6484346-1 (Version None)
Quarter: 2009Q4

REPORT INFORMATION
  Report Type: 
  Country: None (occurrence: None)
  Receive Date: 20091203
  Receipt Date: 20091118
  Transmission Date: 20100525
  Serious: Yes (Death, Hospitalization)
  Sender: FDA-Public Use
  Company Number: 2008002291

PATIENT
  Age: 64 Year
  Sex: Male
  Weight: 61 kg

DRUGS (11)
  1. ERLOTINIB HYDROCHLORIDE [Suspect]
     Indication: NON-SMALL CELL LUNG CANCER
     Dosage: 150 MG, QD, ORAL
     Route: 048
     Dates: start: 20080718, end: 20080818
  2. SUNITINIB/PLACEBO [Suspect]
     Indication: NON-SMALL CELL LUNG CANCER
     Dosage: 37.5 MG, QD, ORAL
     Route: 048
     Dates: start: 20080718, end: 20080818
  3. VOLTAREN [Concomitant]
  4. ENALAPRIL MALEATE [Concomitant]
  5. OMEPRAZOLE [Concomitant]
  6. MEGESTROL ACETATE [Concomitant]
  7. LORAZEPAM [Concomitant]
  8. FENTANYL-100 [Concomitant]
  9. METFORMIN HCL [Concomitant]
  10. ALPRAZOLAM (AMLRAZOLAM) [Concomitant]
  11. SERTRALINE (SERTALINE) [Concomitant]

REACTIONS (5)
  - ATAXIA [None]
  - DEPRESSION [None]
  - HAEMOGLOBIN DECREASED [None]
  - MALIGNANT NEOPLASM PROGRESSION [None]
  - NON-SMALL CELL LUNG CANCER METASTATIC [None]
